FAERS Safety Report 7260738-8 (Version None)
Quarter: 2011Q1

REPORT INFORMATION
  Report Type: 
  Country: None (occurrence: None)
  Receive Date: 20110128
  Receipt Date: 20110128
  Transmission Date: 20110831
  Serious: Yes (Hospitalization)
  Sender: FDA-Public Use
  Company Number: None

PATIENT
  Sex: Male

DRUGS (1)
  1. ASEPTIC ALCOHOL SWAB 70% TRIAD [Suspect]

REACTIONS (3)
  - AURICULAR SWELLING [None]
  - CELLULITIS [None]
  - INFLUENZA [None]
